FAERS Safety Report 5320032-9 (Version None)
Quarter: 2007Q1

REPORT INFORMATION
  Report Type: 
  Country: None (occurrence: None)
  Receive Date: 20070215
  Receipt Date: 20060331
  Transmission Date: 20070707
  Serious: Yes (Death)
  Sender: FDA-Public Use
  Company Number: MC200600257

PATIENT
  Age: 62 Year
  Sex: Male
  Weight: 86.2 kg

DRUGS (2)
  1. ANGIOMAX [Suspect]
  2. ASPIRIN [Concomitant]

REACTIONS (1)
  - CORONARY ARTERY THROMBOSIS [None]
